FAERS Safety Report 21599194 (Version 3)
Quarter: 2022Q4

REPORT INFORMATION
  Report Type: Spontaneous
  Country: US (occurrence: US)
  Receive Date: 20221115
  Receipt Date: 20221209
  Transmission Date: 20230113
  Serious: Yes (Death, Hospitalization)
  Sender: FDA-Public Use
  Company Number: US-BAUSCH-BL-2022-025283

PATIENT
  Age: 77 Year
  Sex: Female

DRUGS (1)
  1. BEXAROTENE [Suspect]
     Active Substance: BEXAROTENE
     Indication: Leukaemia
     Route: 048

REACTIONS (2)
  - Leukaemia [Fatal]
  - Hospitalisation [Unknown]

NARRATIVE: CASE EVENT DATE: 20221001
